FAERS Safety Report 19947060 (Version 6)
Quarter: 2021Q4

REPORT INFORMATION
  Report Type: Spontaneous
  Country: JP (occurrence: JP)
  Receive Date: 20211012
  Receipt Date: 20211214
  Transmission Date: 20220303
  Serious: Yes (Hospitalization)
  Sender: FDA-Public Use
  Company Number: JP-ABBVIE-21K-087-4116828-00

PATIENT
  Age: 59 Year
  Sex: Female
  Weight: 45.6 kg

DRUGS (8)
  1. RINVOQ [Suspect]
     Active Substance: UPADACITINIB
     Indication: Rheumatoid arthritis
     Route: 048
     Dates: start: 20210602, end: 20210921
  2. RHEUMATREX [Suspect]
     Active Substance: METHOTREXATE SODIUM
     Indication: Product used for unknown indication
     Route: 065
     Dates: end: 20200804
  3. LEFLUNOMIDE [Concomitant]
     Active Substance: LEFLUNOMIDE
     Indication: Rheumatoid arthritis
     Route: 048
     Dates: start: 20140908
  4. ELDECALCITOL [Concomitant]
     Active Substance: ELDECALCITOL
     Indication: Osteoporosis
     Route: 048
     Dates: start: 20130401
  5. IGURATIMOD [Concomitant]
     Active Substance: IGURATIMOD
     Indication: Rheumatoid arthritis
     Route: 048
  6. REBAMIPIDE [Concomitant]
     Active Substance: REBAMIPIDE
     Indication: Adverse reaction
     Route: 048
  7. REBAMIPIDE [Concomitant]
     Active Substance: REBAMIPIDE
     Indication: Adverse reaction
  8. DOMPERIDONE [Concomitant]
     Active Substance: DOMPERIDONE
     Indication: Adverse reaction
     Route: 048

REACTIONS (5)
  - Diplegia [Not Recovered/Not Resolved]
  - Gastrointestinal disorder [Unknown]
  - Thoracic vertebral fracture [Not Recovered/Not Resolved]
  - Hodgkin^s disease [Not Recovered/Not Resolved]
  - Back pain [Unknown]

NARRATIVE: CASE EVENT DATE: 20210918
